FAERS Safety Report 25005999 (Version 2)
Quarter: 2025Q1

REPORT INFORMATION
  Report Type: Spontaneous
  Country: US (occurrence: US)
  Receive Date: 20250224
  Receipt Date: 20250321
  Transmission Date: 20250409
  Serious: No
  Sender: MYLAN
  Company Number: US-MYLANLABS-2025M1013792

PATIENT
  Sex: Female

DRUGS (1)
  1. PROCTOFOAM HC [Suspect]
     Active Substance: HYDROCORTISONE ACETATE\PRAMOXINE HYDROCHLORIDE
     Indication: Product used for unknown indication
     Dosage: 1 PERCENT, BID (TWICE DAILY)
     Dates: start: 20250126

REACTIONS (4)
  - Off label use [Unknown]
  - Device delivery system issue [Unknown]
  - Device leakage [Unknown]
  - Device defective [Unknown]

NARRATIVE: CASE EVENT DATE: 20250101
